FAERS Safety Report 14588419 (Version 3)
Quarter: 2018Q4

REPORT INFORMATION
  Report Type: Report from Study
  Country: GB (occurrence: GB)
  Receive Date: 20180301
  Receipt Date: 20181217
  Transmission Date: 20190204
  Serious: Yes (Hospitalization)
  Sender: FDA-Public Use
  Company Number: PHHO2018GB002692

PATIENT
  Age: 74 Year
  Sex: Female
  Weight: 98.4 kg

DRUGS (17)
  1. PARACETAMOL [Concomitant]
     Active Substance: ACETAMINOPHEN
     Indication: CHRONIC LYMPHOCYTIC LEUKAEMIA
     Dosage: 1000 MG, PER PROTOCOL
     Route: 048
     Dates: start: 20140620
  2. SERETIDE [Concomitant]
     Active Substance: FLUTICASONE PROPIONATE\SALMETEROL XINAFOATE
     Indication: ASTHMA
     Dosage: 2 DF, BID
     Route: 055
     Dates: start: 19660416
  3. FUROSEMIDE. [Concomitant]
     Active Substance: FUROSEMIDE
     Indication: CHRONIC KIDNEY DISEASE
     Dosage: 80 MG, QD
     Route: 048
     Dates: start: 20111020
  4. OFATUMUMAB [Suspect]
     Active Substance: OFATUMUMAB
     Indication: CHRONIC LYMPHOCYTIC LEUKAEMIA
     Dosage: 1000 MG, PER PROTOCOL
     Route: 042
     Dates: start: 20140620
  5. COMPARATOR BENDAMUSTINE [Suspect]
     Active Substance: BENDAMUSTINE
     Indication: CHRONIC LYMPHOCYTIC LEUKAEMIA
     Dosage: 105 MG, PER PROTOCOL
     Route: 042
     Dates: start: 20140621
  6. CHLORPHENIRAMINE. [Suspect]
     Active Substance: CHLORPHENIRAMINE
     Indication: CHRONIC LYMPHOCYTIC LEUKAEMIA
     Dosage: 10.0 MG, PER PROTOCOL
     Route: 042
     Dates: start: 20140620
  7. HYDROCORTISONE. [Suspect]
     Active Substance: HYDROCORTISONE
     Indication: CHRONIC LYMPHOCYTIC LEUKAEMIA
     Dosage: 100 MG, PER PROTOCOL
     Route: 042
     Dates: start: 20140620
  8. METOCLOPRAMIDE. [Concomitant]
     Active Substance: METOCLOPRAMIDE
     Indication: CHRONIC LYMPHOCYTIC LEUKAEMIA
     Dosage: 10 MG, PER PROTOCOL
     Route: 048
     Dates: start: 20140618
  9. THYROXINE [Concomitant]
     Active Substance: LEVOTHYROXINE
     Indication: HYPERTHYROIDISM
     Dosage: 100 UG, QD
     Route: 048
     Dates: start: 20140123
  10. LANSOPRAZOLE. [Concomitant]
     Active Substance: LANSOPRAZOLE
     Indication: GASTROOESOPHAGEAL REFLUX DISEASE
     Dosage: 30 MG, QD
     Route: 048
     Dates: start: 19960101
  11. NAPROXEN. [Concomitant]
     Active Substance: NAPROXEN
     Indication: NECK PAIN
     Dosage: 500 MG, BID
     Route: 048
     Dates: start: 20090121
  12. NO TREATMENT RECEIVED [Suspect]
     Active Substance: UNSPECIFIED INGREDIENT
     Indication: CHRONIC LYMPHOCYTIC LEUKAEMIA
     Dosage: NO TREATMENT
     Route: 065
  13. G-CSF [Concomitant]
     Active Substance: GRANULOCYTE COLONY-STIMULATING FACTOR NOS
     Indication: CHRONIC LYMPHOCYTIC LEUKAEMIA
     Dosage: 30 PER PROTOCOL
     Route: 058
     Dates: start: 20141110, end: 20141114
  14. RAMIPRIL. [Concomitant]
     Active Substance: RAMIPRIL
     Indication: HYPERTENSION
     Dosage: 5 MG, ONCE/SINGLE
     Route: 048
     Dates: start: 20100409
  15. DOSULEPIN HYDROCHLORIDE [Concomitant]
     Active Substance: DOTHIEPIN HYDROCHLORIDE
     Indication: DEPRESSION
     Dosage: 75 MG, ONCE/SINGLE
     Route: 048
     Dates: start: 20140123
  16. SIMVASTATIN. [Concomitant]
     Active Substance: SIMVASTATIN
     Indication: CARDIAC DISORDER
     Dosage: 20 MG, ONCE/SINGLE
     Route: 048
     Dates: start: 20100409
  17. ACICLOVIR [Concomitant]
     Active Substance: ACYCLOVIR
     Indication: CHRONIC LYMPHOCYTIC LEUKAEMIA
     Dosage: 400 MG, PER PROTOCOL
     Route: 048
     Dates: start: 20140618

REACTIONS (1)
  - Gastroenteritis viral [Recovered/Resolved]

NARRATIVE: CASE EVENT DATE: 20141113
